FAERS Safety Report 6423139-8 (Version None)
Quarter: 2009Q4

REPORT INFORMATION
  Report Type: 
  Country: None (occurrence: None)
  Receive Date: 20091022
  Receipt Date: 20090116
  Transmission Date: 20100525
  Serious: Yes (Death)
  Sender: FDA-Public Use
  Company Number: 2009RR-20693

PATIENT
  Age: 38 Year
  Sex: Female

DRUGS (3)
  1. LORAZEPAM [Suspect]
     Indication: DRUG ABUSE
     Dosage: ORAL
     Route: 048
  2. ACETAMINOPHEN/OXYCODONE (ACETAMINOPHEN/OXYCODONE) [Suspect]
     Indication: DRUG ABUSE
     Dosage: ORAL
     Route: 048
  3. ETHANOL (ETHANOL) [Suspect]
     Indication: DRUG ABUSE
     Dosage: ORAL
     Route: 048

REACTIONS (1)
  - DRUG ABUSE [None]
